FAERS Safety Report 8547196-8 (Version None)
Quarter: 2012Q3

REPORT INFORMATION
  Report Type: 
  Country: None (occurrence: None)
  Receive Date: 20120727
  Receipt Date: 20120224
  Transmission Date: 20120928
  Serious: No
  Sender: FDA-Public Use
  Company Number: US-ASTRAZENECA-2012SE13416

PATIENT
  Sex: Male

DRUGS (2)
  1. SEROQUEL [Suspect]
     Route: 048
  2. SEROQUEL [Suspect]
     Route: 048
     Dates: start: 20120101, end: 20120101

REACTIONS (4)
  - INCORRECT DOSE ADMINISTERED [None]
  - RESTLESSNESS [None]
  - ANXIETY [None]
  - DRUG DISPENSING ERROR [None]
